FAERS Safety Report 5469423-6 (Version None)
Quarter: 2007Q3

REPORT INFORMATION
  Report Type: 
  Country: None (occurrence: None)
  Receive Date: 20070925
  Receipt Date: 20070925
  Transmission Date: 20080115
  Serious: Yes (Life-Threatening, Hospitalization)
  Sender: FDA-Public Use
  Company Number: None

PATIENT
  Age: 72 Year
  Sex: Male

DRUGS (7)
  1. HEPARIN [Suspect]
     Indication: CORONARY ARTERY BYPASS
     Dosage: VARIOUS   IV
     Route: 042
     Dates: start: 20070224, end: 20070224
  2. HEPARIN [Suspect]
     Indication: ATRIAL THROMBOSIS
     Dosage: VARIOUS   IV DRIP
     Route: 041
     Dates: start: 20060310, end: 20070412
  3. FUROSEMIDE [Concomitant]
  4. METOPROLOL SUCCINATE EXTENDED RELEASE [Concomitant]
  5. ALBUTEROL [Concomitant]
  6. CODEINE SUL TAB [Concomitant]
  7. DARVOCET [Concomitant]

REACTIONS (4)
  - ATRIAL FIBRILLATION [None]
  - ATRIAL THROMBOSIS [None]
  - DYSPNOEA [None]
  - HEPARIN-INDUCED THROMBOCYTOPENIA [None]
